FAERS Safety Report 5962588-9 (Version None)
Quarter: 2008Q4

REPORT INFORMATION
  Report Type: 
  Country: None (occurrence: None)
  Receive Date: 20081121
  Receipt Date: 20081112
  Transmission Date: 20090506
  Serious: Yes (Hospitalization)
  Sender: FDA-Public Use
  Company Number: JP-PFIZER INC-2008096347

PATIENT
  Age: 88 Year
  Sex: Female

DRUGS (3)
  1. EPLERENONE [Suspect]
     Dosage: DAILY DOSE:50MG
     Route: 048
  2. VALSARTAN [Suspect]
     Route: 048
  3. NORPACE [Suspect]
     Route: 048

REACTIONS (2)
  - BRADYCARDIA [None]
  - HYPERKALAEMIA [None]
